FAERS Safety Report 25790297 (Version 1)
Quarter: 2025Q3

REPORT INFORMATION
  Report Type: Report from Study
  Country: US (occurrence: US)
  Receive Date: 20250911
  Receipt Date: 20250911
  Transmission Date: 20251020
  Serious: Yes (Other)
  Sender: MYLAN
  Company Number: US-MYLANLABS-2025M1077080

PATIENT
  Age: 69 Year
  Sex: Female
  Weight: 60.78 kg

DRUGS (16)
  1. YUPELRI [Suspect]
     Active Substance: REVEFENACIN
     Indication: Chronic obstructive pulmonary disease
     Dosage: 175 MICROGRAM PER 3 MILLILITER, QD (ONCE DAILY, VIA NEBULIZER)
     Dates: start: 20220427, end: 20250722
  2. YUPELRI [Suspect]
     Active Substance: REVEFENACIN
     Dosage: 175 MICROGRAM PER 3 MILLILITER, QD (ONCE DAILY, VIA NEBULIZER)
     Route: 065
     Dates: start: 20220427, end: 20250722
  3. YUPELRI [Suspect]
     Active Substance: REVEFENACIN
     Dosage: 175 MICROGRAM PER 3 MILLILITER, QD (ONCE DAILY, VIA NEBULIZER)
     Route: 065
     Dates: start: 20220427, end: 20250722
  4. YUPELRI [Suspect]
     Active Substance: REVEFENACIN
     Dosage: 175 MICROGRAM PER 3 MILLILITER, QD (ONCE DAILY, VIA NEBULIZER)
     Dates: start: 20220427, end: 20250722
  5. OHTUVAYRE [Concomitant]
     Active Substance: ENSIFENTRINE
  6. OHTUVAYRE [Concomitant]
     Active Substance: ENSIFENTRINE
     Route: 065
  7. OHTUVAYRE [Concomitant]
     Active Substance: ENSIFENTRINE
     Route: 065
  8. OHTUVAYRE [Concomitant]
     Active Substance: ENSIFENTRINE
  9. VENTOLIN [Concomitant]
     Active Substance: ALBUTEROL SULFATE
  10. VENTOLIN [Concomitant]
     Active Substance: ALBUTEROL SULFATE
     Route: 065
  11. VENTOLIN [Concomitant]
     Active Substance: ALBUTEROL SULFATE
     Route: 065
  12. VENTOLIN [Concomitant]
     Active Substance: ALBUTEROL SULFATE
  13. ALBUTEROL [Concomitant]
     Active Substance: ALBUTEROL
  14. ALBUTEROL [Concomitant]
     Active Substance: ALBUTEROL
     Route: 065
  15. ALBUTEROL [Concomitant]
     Active Substance: ALBUTEROL
     Route: 065
  16. ALBUTEROL [Concomitant]
     Active Substance: ALBUTEROL

REACTIONS (3)
  - Wheezing [Recovered/Resolved]
  - Dyspnoea [Recovered/Resolved]
  - Bronchospasm [Recovered/Resolved]

NARRATIVE: CASE EVENT DATE: 20220427
